FAERS Safety Report 7985499-6 (Version None)
Quarter: 2011Q4

REPORT INFORMATION
  Report Type: 
  Country: None (occurrence: None)
  Receive Date: 20111216
  Receipt Date: 20111212
  Transmission Date: 20120403
  Serious: Yes (Other)
  Sender: FDA-Public Use
  Company Number: FR-ROCHE-778117

PATIENT
  Sex: Female
  Weight: 57 kg

DRUGS (3)
  1. AVASTIN [Suspect]
     Indication: RENAL CELL CARCINOMA
     Route: 042
     Dates: start: 20090910, end: 20100201
  2. TEMSIROLIMUS [Suspect]
     Indication: RENAL CELL CARCINOMA
     Route: 042
     Dates: start: 20090910, end: 20100201
  3. METHOTREXATE [Suspect]
     Indication: RHEUMATOID ARTHRITIS
     Route: 065
     Dates: start: 20060101, end: 20110401

REACTIONS (1)
  - B-CELL LYMPHOMA [None]
